FAERS Safety Report 6544109-5 (Version None)
Quarter: 2010Q1

REPORT INFORMATION
  Report Type: 
  Country: None (occurrence: None)
  Receive Date: 20100114
  Receipt Date: 20091202
  Transmission Date: 20100710
  Serious: No
  Sender: FDA-Public Use
  Company Number: 2009BM000337

PATIENT
  Age: 35 Year
  Sex: Female
  Weight: 50.8029 kg

DRUGS (4)
  1. KUVAN [Suspect]
     Indication: PHENYLKETONURIA
     Dosage: 500 MG;QD;PO
     Route: 048
     Dates: start: 20091130
  2. TOXEX SPAG. [Concomitant]
  3. CRYSELLE [Concomitant]
  4. OTHER MINERAL SUPPLEMENTS [Concomitant]

REACTIONS (13)
  - EMOTIONAL DISORDER [None]
  - EUPHORIC MOOD [None]
  - FEAR [None]
  - FEELING ABNORMAL [None]
  - FEELING HOT [None]
  - FEELING JITTERY [None]
  - FLUSHING [None]
  - IRRITABILITY [None]
  - NERVOUSNESS [None]
  - PSYCHOMOTOR HYPERACTIVITY [None]
  - SOMNOLENCE [None]
  - TENSION [None]
  - TREMOR [None]
